FAERS Safety Report 4350029-7 (Version None)
Quarter: 2004Q2

REPORT INFORMATION
  Report Type: 
  Country: None (occurrence: None)
  Receive Date: 20040429
  Receipt Date: 20040423
  Transmission Date: 20050107
  Serious: Yes (Hospitalization)
  Sender: FDA-Public Use
  Company Number: 200414398GDDC

PATIENT
  Age: 87 Year
  Sex: Female

DRUGS (11)
  1. INDAPAMIDE [Suspect]
     Route: 048
     Dates: end: 20040204
  2. LANZOR [Suspect]
     Route: 048
  3. LORAZEPAM [Concomitant]
  4. KARDEGIC [Concomitant]
  5. PRITOR [Concomitant]
     Dates: end: 20040204
  6. SOTALEX [Concomitant]
  7. VALACYCLOVIR HCL [Concomitant]
     Dates: start: 20040101, end: 20040101
  8. NEURONTIN [Concomitant]
     Dates: start: 20040126, end: 20040128
  9. STABLON [Concomitant]
     Dates: start: 20040130
  10. JOSACIN [Concomitant]
     Dates: start: 20040130
  11. SURBRONC [Concomitant]
     Dates: start: 20040130

REACTIONS (4)
  - ABNORMAL BEHAVIOUR [None]
  - ASTHENIA [None]
  - HYPOKALAEMIA [None]
  - HYPONATRAEMIA [None]
